FAERS Safety Report 5207447-4 (Version None)
Quarter: 2007Q1

REPORT INFORMATION
  Report Type: 
  Country: None (occurrence: None)
  Receive Date: 20070112
  Receipt Date: 20070104
  Transmission Date: 20070707
  Serious: Yes (Hospitalization)
  Sender: FDA-Public Use
  Company Number: FR-ABBOTT-07P-056-0354936-00

PATIENT
  Age: 9 Year
  Sex: Male

DRUGS (3)
  1. DEPAKENE [Suspect]
     Indication: EPILEPSY
     Route: 048
  2. GONADORELIN INJ [Suspect]
     Indication: PRECOCIOUS PUBERTY
     Route: 030
  3. GONADORELIN INJ [Suspect]

REACTIONS (1)
  - PRECOCIOUS PUBERTY [None]
